FAERS Safety Report 8956971 (Version 1)
Quarter: 2012Q4

REPORT INFORMATION
  Report Type: 
  Country: BR (occurrence: BR)
  Receive Date: 20121211
  Receipt Date: 20121211
  Transmission Date: 20130627
  Serious: Yes (Other)
  Sender: FDA-Public Use
  Company Number: BR-PFIZER INC-2012307884

PATIENT
  Sex: Male
  Weight: 66.5 kg

DRUGS (4)
  1. SUTENT [Suspect]
     Indication: GASTROINTESTINAL CARCINOMA
     Dosage: 50 mg, 1x/day
     Route: 048
     Dates: start: 20120322
  2. CAPTOPRIL [Concomitant]
  3. ALDOMET [Concomitant]
  4. OMEPRAZOL [Concomitant]

REACTIONS (3)
  - Oesophageal obstruction [Unknown]
  - Oesophageal pain [Unknown]
  - Weight decreased [Unknown]
